FAERS Safety Report 7237263-3 (Version None)
Quarter: 2011Q1

REPORT INFORMATION
  Report Type: 
  Country: None (occurrence: None)
  Receive Date: 20110121
  Receipt Date: 20110107
  Transmission Date: 20110831
  Serious: Yes (Hospitalization)
  Sender: FDA-Public Use
  Company Number: JP-CELGENEUS-087-21880-11010477

PATIENT
  Sex: Male

DRUGS (18)
  1. LENADEX [Suspect]
     Route: 048
     Dates: start: 20101116, end: 20101127
  2. STAYBLA [Concomitant]
     Indication: NEUROGENIC BLADDER
     Route: 048
     Dates: start: 20100309, end: 20101130
  3. OXYCONTIN [Concomitant]
     Route: 048
     Dates: start: 20101118, end: 20101130
  4. ASPIRIN [Concomitant]
     Indication: PROPHYLAXIS
     Route: 048
     Dates: start: 20100121, end: 20101130
  5. CELECOXIB [Concomitant]
     Route: 048
     Dates: start: 20100513, end: 20101130
  6. LENADEX [Suspect]
     Indication: MULTIPLE MYELOMA
     Route: 048
     Dates: start: 20101102, end: 20101102
  7. OXINORM [Concomitant]
     Route: 048
     Dates: start: 20101118, end: 20101118
  8. REVLIMID [Suspect]
     Route: 048
     Dates: start: 20101118, end: 20101118
  9. BAKTAR [Concomitant]
     Indication: PROPHYLAXIS
     Route: 048
     Dates: start: 20101018, end: 20101130
  10. VALTREX [Concomitant]
     Indication: PROPHYLAXIS
     Route: 048
     Dates: start: 20100214, end: 20101130
  11. PARIET [Concomitant]
     Indication: PROPHYLAXIS
     Route: 048
     Dates: start: 20101014, end: 20101130
  12. NOVAMIN [Concomitant]
     Route: 048
     Dates: start: 20101118, end: 20101124
  13. REVLIMID [Suspect]
     Route: 048
     Dates: start: 20101111, end: 20101115
  14. LYRICA [Concomitant]
     Route: 048
     Dates: start: 20100909, end: 20101130
  15. REVLIMID [Suspect]
     Indication: MULTIPLE MYELOMA
     Route: 048
     Dates: start: 20101102, end: 20101109
  16. REVLIMID [Suspect]
     Route: 048
     Dates: start: 20101116, end: 20101116
  17. LENADEX [Suspect]
     Route: 048
     Dates: start: 20101109, end: 20101109
  18. TAMSULOSIN HCL [Concomitant]
     Indication: NEUROGENIC BLADDER
     Route: 048
     Dates: start: 20070501, end: 20101130

REACTIONS (4)
  - HYPERURICAEMIA [None]
  - THROMBOCYTOPENIA [None]
  - RENAL FAILURE ACUTE [None]
  - HYPERCALCAEMIA [None]
